FAERS Safety Report 10143111 (Version 1)
Quarter: 2014Q2

REPORT INFORMATION
  Report Type: Spontaneous
  Country: US (occurrence: None)
  Receive Date: 20140429
  Receipt Date: 20140429
  Transmission Date: 20141212
  Serious: Yes (Hospitalization)
  Sender: FDA-Public Use
  Company Number: None

PATIENT
  Age: 22 Year
  Sex: Female
  Weight: 63.5 kg

DRUGS (1)
  1. MIRENA IUD [Suspect]
     Dates: start: 20140109

REACTIONS (11)
  - Alopecia [None]
  - Weight increased [None]
  - Mood swings [None]
  - Acne [None]
  - Dizziness [None]
  - Disturbance in attention [None]
  - Muscle spasms [None]
  - Uterine pain [None]
  - Uterine haemorrhage [None]
  - Loss of consciousness [None]
  - Feeling abnormal [None]
